FAERS Safety Report 7232419-8 (Version None)
Quarter: 2011Q1

REPORT INFORMATION
  Report Type: 
  Country: None (occurrence: None)
  Receive Date: 20110119
  Receipt Date: 20110118
  Transmission Date: 20110831
  Serious: No
  Sender: FDA-Public Use
  Company Number: US-PFIZER INC-2010150611

PATIENT

DRUGS (2)
  1. AMITRIPTYLINE [Suspect]
     Dosage: UNK
  2. GABAPENTIN [Suspect]
     Dosage: UNK

REACTIONS (3)
  - DYSGEUSIA [None]
  - TREMOR [None]
  - PAIN [None]
